FAERS Safety Report 6741464-8 (Version None)
Quarter: 2010Q2

REPORT INFORMATION
  Report Type: 
  Country: None (occurrence: None)
  Receive Date: 20100526
  Receipt Date: 20100521
  Transmission Date: 20101027
  Serious: Yes (Other)
  Sender: FDA-Public Use
  Company Number: US-JNJFOC-20100206456

PATIENT
  Age: 63 Year
  Sex: Male

DRUGS (2)
  1. LEVOFLOXACIN [Suspect]
     Indication: DRUG USE FOR UNKNOWN INDICATION
     Route: 048
  2. LORAZEPAM [Concomitant]
     Route: 065

REACTIONS (10)
  - ARTHRALGIA [None]
  - ARTHROPATHY [None]
  - ASTHENIA [None]
  - BLISTER [None]
  - IMMUNE SYSTEM DISORDER [None]
  - JOINT SWELLING [None]
  - LIGAMENT PAIN [None]
  - LOCAL SWELLING [None]
  - RASH [None]
  - TENDONITIS [None]
